FAERS Safety Report 19970502 (Version 1)
Quarter: 2021Q4

REPORT INFORMATION
  Report Type: Other
  Country: CA (occurrence: CA)
  Receive Date: 20211020
  Receipt Date: 20211020
  Transmission Date: 20220303
  Serious: Yes (Other)
  Sender: FDA-Public Use
  Company Number: CA-CELLTRION INC.-2021CA014010

PATIENT

DRUGS (19)
  1. RITUXIMAB [Suspect]
     Active Substance: RITUXIMAB
     Indication: Rheumatoid arthritis
     Dosage: 1000.0 MG
     Route: 041
  2. ESBRIET [Suspect]
     Active Substance: PIRFENIDONE
     Indication: Idiopathic pulmonary fibrosis
     Dosage: 801.0 MG, 3 EVERY 1 DAYS
     Route: 048
  3. ESBRIET [Suspect]
     Active Substance: PIRFENIDONE
     Dosage: 267.0 MG, 3 EVERY 1 DAYS
     Route: 048
  4. METHYLPREDNISOLONE [Suspect]
     Active Substance: METHYLPREDNISOLONE
     Indication: Premedication
     Dosage: 100.0 MG
     Route: 042
  5. ACETAMINOPHEN [Concomitant]
     Active Substance: ACETAMINOPHEN
     Indication: Premedication
     Dosage: 650.0 MG
     Route: 048
  6. CALCIUM [Concomitant]
     Active Substance: CALCIUM
  7. DILANTIN [Concomitant]
     Active Substance: PHENYTOIN
  8. DIPHENHYDRAMINE HYDROCHLORIDE [Concomitant]
     Active Substance: DIPHENHYDRAMINE HYDROCHLORIDE
     Indication: Premedication
     Dosage: 50.0 MG
     Route: 048
  9. DOMPERIDONE [Concomitant]
     Active Substance: DOMPERIDONE
  10. EZETIMIBE [Concomitant]
     Active Substance: EZETIMIBE
     Dosage: 10.0 MG, 1 EVERY 1 DAYS
     Route: 065
  11. FENOFIBRATE [Concomitant]
     Active Substance: FENOFIBRATE
     Dosage: 145.0 MG, 1 EVERY 1 DAYS
     Route: 065
  12. FOLIC ACID [Concomitant]
     Active Substance: FOLIC ACID
  13. HYDROCODONE [Concomitant]
     Active Substance: HYDROCODONE
     Dosage: 1.0 MG
     Route: 065
  14. METHOTREXATE [Concomitant]
     Active Substance: METHOTREXATE
     Route: 037
  15. PANTOPRAZOLE [Concomitant]
     Active Substance: PANTOPRAZOLE
     Dosage: 40.0 MG, 1 EVERY 1 DAYS
     Route: 065
  16. HERBALS\PLANTAGO OVATA LEAF [Concomitant]
     Active Substance: HERBALS\PLANTAGO OVATA LEAF
     Dosage: 1 EVERY 1 DAYS
     Route: 065
  17. PRIMIDONE [Concomitant]
     Active Substance: PRIMIDONE
  18. VARDENAFIL HYDROCHLORIDE [Concomitant]
     Active Substance: VARDENAFIL HYDROCHLORIDE
     Dosage: 20.0 MG
     Route: 065
  19. VITAMIN D3 [Concomitant]
     Active Substance: CHOLECALCIFEROL
     Dosage: 100 IU (INTERNATIONAL UNIT), 1 EVERY 1 DAYS
     Route: 065

REACTIONS (8)
  - Bradycardia [Unknown]
  - Epilepsy [Unknown]
  - Injection site extravasation [Unknown]
  - Pulmonary function test abnormal [Unknown]
  - Weight decreased [Unknown]
  - Blood pressure increased [Unknown]
  - Hypotension [Unknown]
  - Illness [Unknown]
